FAERS Safety Report 11529853 (Version 2)
Quarter: 2015Q3

REPORT INFORMATION
  Report Type: Report from Study
  Country: US (occurrence: US)
  Receive Date: 20150921
  Receipt Date: 20150928
  Transmission Date: 20151125
  Serious: Yes (Hospitalization, Other)
  Sender: FDA-Public Use
  Company Number: US-GLAXOSMITHKLINE-US2015GSK130813

PATIENT
  Sex: Female
  Weight: 82.7 kg

DRUGS (28)
  1. ALBIGLUTIDE [Suspect]
     Active Substance: ALBIGLUTIDE
     Dosage: 30 MG, WE
     Dates: start: 20150814
  2. INTERMEDIATE/LONG-ACTING INSULIN [Suspect]
     Active Substance: INSULIN NOS
     Indication: TYPE 2 DIABETES MELLITUS
     Dosage: UNK
     Dates: start: 20150623
  3. LEVOFLOXACIN. [Concomitant]
     Active Substance: LEVOFLOXACIN
  4. ALBIGLUTIDE [Suspect]
     Active Substance: ALBIGLUTIDE
     Dosage: 30 MG, WE
     Dates: start: 20150905
  5. NOVOLOG [Concomitant]
     Active Substance: INSULIN ASPART
  6. ATORVASTATIN [Concomitant]
     Active Substance: ATORVASTATIN
  7. INSULIN REGULAR [Concomitant]
     Active Substance: INSULIN NOS
  8. METOCHLOPRAMIDE [Concomitant]
     Active Substance: METOCLOPRAMIDE HYDROCHLORIDE
  9. ALBIGLUTIDE [Suspect]
     Active Substance: ALBIGLUTIDE
     Dosage: 30 MG, WE
     Dates: start: 20150807
  10. PROTONIX [Concomitant]
     Active Substance: PANTOPRAZOLE SODIUM
  11. NPH INSULIN [Concomitant]
     Active Substance: INSULIN BEEF
  12. BENAZEPRIL [Concomitant]
     Active Substance: BENAZEPRIL HYDROCHLORIDE
  13. ALBIGLUTIDE [Suspect]
     Active Substance: ALBIGLUTIDE
     Indication: TYPE 2 DIABETES MELLITUS
     Dosage: 30 MG, WE
     Dates: start: 20150724
  14. ALBIGLUTIDE [Suspect]
     Active Substance: ALBIGLUTIDE
     Dosage: 30 MG, WE
     Dates: start: 20150829
  15. ZOSYN [Concomitant]
     Active Substance: PIPERACILLIN SODIUM\TAZOBACTAM SODIUM
  16. CARVEDILOL. [Concomitant]
     Active Substance: CARVEDILOL
  17. ALBUTEROL. [Concomitant]
     Active Substance: ALBUTEROL
  18. ALBIGLUTIDE [Suspect]
     Active Substance: ALBIGLUTIDE
     Dosage: 30 MG, WE
     Dates: start: 20150821
  19. CARAFATE [Concomitant]
     Active Substance: SUCRALFATE
  20. LANTUS [Concomitant]
     Active Substance: INSULIN GLARGINE
  21. DEXTROSE AND SODIUM CHLORIDE [Concomitant]
     Active Substance: DEXTROSE MONOHYDRATE\SODIUM CHLORIDE
  22. ENOXAPARIN [Concomitant]
     Active Substance: ENOXAPARIN
  23. ZOFRAN [Concomitant]
     Active Substance: ONDANSETRON HYDROCHLORIDE
  24. INSULIN LISPRO [Concomitant]
     Active Substance: INSULIN LISPRO
  25. ALBIGLUTIDE [Suspect]
     Active Substance: ALBIGLUTIDE
     Dosage: 30 MG, WE
     Dates: start: 20150731
  26. ASA [Concomitant]
     Active Substance: ASPIRIN
  27. FUROSEMIDE. [Concomitant]
     Active Substance: FUROSEMIDE
  28. SPIRONOLACTONE. [Concomitant]
     Active Substance: SPIRONOLACTONE

REACTIONS (1)
  - Deep vein thrombosis [Not Recovered/Not Resolved]

NARRATIVE: CASE EVENT DATE: 20150908
